FAERS Safety Report 11200108 (Version 3)
Quarter: 2016Q4

REPORT INFORMATION
  Report Type: Spontaneous
  Country: US (occurrence: US)
  Receive Date: 20150618
  Receipt Date: 20161028
  Transmission Date: 20170206
  Serious: Yes (Other)
  Sender: FDA-Public Use
  Company Number: US-TEVA-570316USA

PATIENT
  Age: 33 Year
  Sex: Female

DRUGS (1)
  1. PARAGARD T 380A [Suspect]
     Active Substance: COPPER
     Indication: CONTRACEPTION
     Route: 015
     Dates: start: 2010, end: 20150511

REACTIONS (3)
  - Pregnancy on contraceptive [Unknown]
  - Ectopic pregnancy [Unknown]
  - Complication associated with device [Unknown]

NARRATIVE: CASE EVENT DATE: 201506
